FAERS Safety Report 19781491 (Version 2)
Quarter: 2021Q4

REPORT INFORMATION
  Report Type: Spontaneous
  Country: EG (occurrence: EG)
  Receive Date: 20210902
  Receipt Date: 20211217
  Transmission Date: 20220304
  Serious: Yes (Death, Other)
  Sender: FDA-Public Use
  Company Number: EG-PFIZER INC-2021588944

PATIENT
  Age: 48 Year
  Sex: Female

DRUGS (2)
  1. IBRANCE [Suspect]
     Active Substance: PALBOCICLIB
     Indication: Breast cancer metastatic
     Dosage: 125 MG, DAILY FOR 3 WEEKS ON AND 1 WEEK OFF
     Route: 048
     Dates: start: 20210118
  2. IBRANCE [Suspect]
     Active Substance: PALBOCICLIB
     Dosage: 100 MG, DAILY FOR 3 WEEKS ON AND 1 WEEK OFF
     Dates: start: 20210523

REACTIONS (7)
  - Pneumonia [Fatal]
  - Neutropenia [Unknown]
  - Vomiting [Unknown]
  - Fatigue [Unknown]
  - Cough [Unknown]
  - Decreased appetite [Unknown]
  - COVID-19 [Unknown]
